FAERS Safety Report 19225565 (Version 5)
Quarter: 2021Q3

REPORT INFORMATION
  Report Type: Report from Study
  Country: US (occurrence: US)
  Receive Date: 20210506
  Receipt Date: 20210923
  Transmission Date: 20211014
  Serious: No
  Sender: FDA-Public Use
  Company Number: US-BIOVITRUM-2021US4265

PATIENT
  Sex: Female

DRUGS (1)
  1. KINERET [Suspect]
     Active Substance: ANAKINRA
     Indication: PRODUCT USED FOR UNKNOWN INDICATION
     Route: 058

REACTIONS (4)
  - Hordeolum [Recovering/Resolving]
  - Inappropriate schedule of product administration [Unknown]
  - Eye pruritus [Unknown]
  - Injection site erythema [Unknown]
